FAERS Safety Report 9256915 (Version 1)
Quarter: 2013Q2

REPORT INFORMATION
  Report Type: Spontaneous
  Country: AT (occurrence: None)
  Receive Date: 20130423
  Receipt Date: 20130423
  Transmission Date: 20140414
  Serious: Yes (Other)
  Sender: FDA-Public Use
  Company Number: B0885138A

PATIENT
  Age: 67 Year
  Sex: Male

DRUGS (5)
  1. VENLAFAXINE HYDROCHLORIDE [Suspect]
  2. WELLBUTRIN [Suspect]
  3. NORTRIPTYLINE [Suspect]
  4. OLANZAPINE [Suspect]
  5. AGOMELATINE [Suspect]

REACTIONS (5)
  - Micturition urgency [None]
  - Urinary hesitation [None]
  - Confusional state [None]
  - Agitation [None]
  - Therapeutic response decreased [None]
